FAERS Safety Report 5226192-2 (Version None)
Quarter: 2007Q1

REPORT INFORMATION
  Report Type: 
  Country: None (occurrence: None)
  Receive Date: 20070201
  Receipt Date: 20070119
  Transmission Date: 20070707
  Serious: Yes (Hospitalization)
  Sender: FDA-Public Use
  Company Number: PHHO2007US01510

PATIENT
  Age: 75 Year
  Sex: Male
  Weight: 83.6 kg

DRUGS (15)
  1. LOTREL [Suspect]
     Indication: HYPERTENSION
     Dosage: UNK, LEVEL 3
     Route: 048
     Dates: start: 20041115, end: 20070119
  2. LOTREL [Suspect]
     Dosage: LEVEL 3
     Route: 048
     Dates: start: 20040908, end: 20041011
  3. LOTREL [Suspect]
     Dosage: LEVEL 2
     Route: 048
     Dates: start: 20041012, end: 20041114
  4. AMARYL [Concomitant]
  5. METFORMIN HCL [Concomitant]
  6. ATENOLOL [Concomitant]
     Dosage: 50 MG, UNK
  7. FEXOFENADINE [Concomitant]
  8. ASPIRIN [Concomitant]
  9. TRICOR [Concomitant]
  10. CLONIDINE [Concomitant]
     Dosage: 0.1 MG, UNK
  11. RANITIDINE [Concomitant]
  12. SULINDAC [Concomitant]
  13. LIPITOR [Concomitant]
  14. VALIUM [Concomitant]
  15. LASIX [Concomitant]
     Dosage: 20 MG, UNK

REACTIONS (20)
  - ARTERIAL STENOSIS [None]
  - ASTHENIA [None]
  - ATELECTASIS [None]
  - BRONCHITIS [None]
  - CARDIAC FAILURE CONGESTIVE [None]
  - CHRONIC OBSTRUCTIVE PULMONARY DISEASE [None]
  - CORONARY ARTERY DISEASE [None]
  - DIASTOLIC DYSFUNCTION [None]
  - DISEASE PROGRESSION [None]
  - DIZZINESS [None]
  - DYSPNOEA EXERTIONAL [None]
  - ELECTROCARDIOGRAM T WAVE AMPLITUDE DECREASED [None]
  - ELECTROCARDIOGRAM T WAVE INVERSION [None]
  - FATIGUE [None]
  - HYPOXIA [None]
  - OEDEMA [None]
  - OEDEMA PERIPHERAL [None]
  - PRODUCTIVE COUGH [None]
  - PULMONARY HYPERTENSION [None]
  - STENT PLACEMENT [None]
